FAERS Safety Report 10771736 (Version 1)
Quarter: 2015Q1

REPORT INFORMATION
  Report Type: Spontaneous
  Country: US (occurrence: US)
  Receive Date: 20150206
  Receipt Date: 20150206
  Transmission Date: 20150721
  Serious: Yes (Other)
  Sender: FDA-Public Use
  Company Number: ALJP2015US000468

PATIENT
  Age: 73 Year
  Sex: Female

DRUGS (6)
  1. NORVASC [Concomitant]
     Active Substance: AMLODIPINE BESYLATE
     Indication: BLOOD PRESSURE
  2. CRESTOR [Concomitant]
     Active Substance: ROSUVASTATIN CALCIUM
     Indication: BLOOD CHOLESTEROL INCREASED
  3. PLAVIX [Concomitant]
     Active Substance: CLOPIDOGREL BISULFATE
  4. AZORGA COMBINATION OPHTHALMIC SUSPENSION [Suspect]
     Active Substance: BRINZOLAMIDE\TIMOLOL MALEATE
     Indication: GLAUCOMA
     Dosage: 1 GTT, QD
     Dates: start: 20150124, end: 20150126
  5. METOPROLOL [Concomitant]
     Active Substance: METOPROLOL
  6. SYNTHROID [Concomitant]
     Active Substance: LEVOTHYROXINE SODIUM
     Indication: HYPOTHYROIDISM

REACTIONS (1)
  - Palpitations [Recovering/Resolving]

NARRATIVE: CASE EVENT DATE: 20150125
